FAERS Safety Report 11733051 (Version 1)
Quarter: 2015Q4

REPORT INFORMATION
  Report Type: Spontaneous
  Country: FR (occurrence: FR)
  Receive Date: 20151113
  Receipt Date: 20151113
  Transmission Date: 20160304
  Serious: Yes (Hospitalization)
  Sender: FDA-Public Use
  Company Number: FR-009507513-1511FRA003325

PATIENT
  Age: 36 Year
  Sex: Female

DRUGS (4)
  1. OVITRELLE [Suspect]
     Active Substance: CHORIOGONADOTROPIN ALFA
     Dosage: PRE-FILLED SYRINGE, 1 DF, ONCE
     Route: 058
     Dates: start: 20140804
  2. FOLLITROPIN BETA [Suspect]
     Active Substance: FOLLITROPIN
     Dosage: 125 IU, ONCE
     Route: 058
     Dates: start: 201408
  3. ORGALUTRAN [Suspect]
     Active Substance: GANIRELIX ACETATE
     Dosage: STRENGTH: 0.25MG/0.5ML, 1 DF, QD
     Route: 058
     Dates: start: 2014
  4. ELONVA [Suspect]
     Active Substance: CORIFOLLITROPIN ALFA
     Dosage: 1 DF, QD
     Route: 058
     Dates: start: 2014, end: 201408

REACTIONS (1)
  - Peritoneal haemorrhage [Recovered/Resolved]

NARRATIVE: CASE EVENT DATE: 20140806
